FAERS Safety Report 12482072 (Version 1)
Quarter: 2016Q2

REPORT INFORMATION
  Report Type: Spontaneous
  Country: US (occurrence: US)
  Receive Date: 20160620
  Receipt Date: 20160620
  Transmission Date: 20160815
  Serious: No
  Sender: FDA-Public Use
  Company Number: US-TRIS PHARMA, INC.-1054067

PATIENT
  Age: 70 Year
  Sex: Male
  Weight: 90.91 kg

DRUGS (2)
  1. DEXTROMETHORPHAN POLISTIREX ER OS 6 MG/ML [Suspect]
     Active Substance: DEXTROMETHORPHAN HYDROBROMIDE
     Indication: COUGH
     Dates: start: 20151022
  2. MUCINEX DM [Concomitant]
     Active Substance: DEXTROMETHORPHAN HYDROBROMIDE\GUAIFENESIN

REACTIONS (5)
  - Accidental overdose [None]
  - Pallor [None]
  - Dizziness [None]
  - Retching [None]
  - Vomiting [None]

NARRATIVE: CASE EVENT DATE: 20151023
